FAERS Safety Report 17218060 (Version 3)
Quarter: 2021Q2

REPORT INFORMATION
  Report Type: Report from Study
  Country: CN (occurrence: CN)
  Receive Date: 20191231
  Receipt Date: 20210512
  Transmission Date: 20210716
  Serious: Yes (Hospitalization)
  Sender: FDA-Public Use
  Company Number: CN-ROCHE-2509942

PATIENT
  Age: 51 Year
  Sex: Female
  Weight: 69 kg

DRUGS (18)
  1. POTASSIUM CHLORIDE. [Concomitant]
     Active Substance: POTASSIUM CHLORIDE
     Indication: NUTRITIONAL SUPPLEMENTATION
     Dates: start: 20190221, end: 20190228
  2. IRON SUCROSE [Concomitant]
     Active Substance: IRON SUCROSE
     Indication: ANAEMIA
     Dates: start: 20190227, end: 20190227
  3. INSULIN [Concomitant]
     Active Substance: INSULIN NOS
     Indication: NUTRITIONAL SUPPLEMENTATION
     Dates: start: 20190221, end: 20190228
  4. GLUCOSE [Concomitant]
     Active Substance: DEXTROSE
     Dates: start: 20190222, end: 20190222
  5. ENOXAPARIN SODIUM. [Concomitant]
     Active Substance: ENOXAPARIN SODIUM
     Indication: THROMBOSIS
     Dates: start: 20190224, end: 20190228
  6. ALECTINIB. [Suspect]
     Active Substance: ALECTINIB
     Indication: NON-SMALL CELL LUNG CANCER
     Dosage: DATE OF MOST RECENT DOSE (450 MG) OF ALECTINIB PRIOR TO AE ONSET WAS ON 31/JAN/2019
     Route: 048
     Dates: start: 20170208
  7. OXYCODONE HYDROCHLORIDE. [Concomitant]
     Active Substance: OXYCODONE HYDROCHLORIDE
     Indication: ANAESTHESIA
     Dates: start: 20190222, end: 20190222
  8. REMIFENTANIL HYDROCHLORIDE. [Concomitant]
     Active Substance: REMIFENTANIL HYDROCHLORIDE
     Indication: ANAESTHESIA
     Dates: start: 20190222, end: 20190222
  9. ZOMETA [Concomitant]
     Active Substance: ZOLEDRONIC ACID
     Dates: start: 20170123
  10. CEFMINOX SODIUM [Concomitant]
     Active Substance: CEFMINOX SODIUM
     Indication: POST PROCEDURAL INFECTION
     Dates: start: 20190222, end: 20190224
  11. COMPOUND GLYCYRRHIZA ORAL SOLUTION [Concomitant]
     Indication: COUGH
     Dates: start: 20190225, end: 20190303
  12. COMPOUND SODIUM CHLORIDE [Concomitant]
     Dates: start: 20190221, end: 20190226
  13. CEFMINOX SODIUM [Concomitant]
     Active Substance: CEFMINOX SODIUM
     Indication: INFECTION
     Dates: start: 20190221, end: 20190221
  14. SUFENTANIL CITRATE. [Concomitant]
     Active Substance: SUFENTANIL CITRATE
     Indication: ANALGESIC THERAPY
     Dates: start: 20190222, end: 20190222
  15. REDUCED GLUTATHIONE SODIUM [Concomitant]
     Active Substance: GLUTATHIONE
     Indication: HEPATIC FUNCTION ABNORMAL
     Dates: start: 20190222, end: 20190228
  16. DEXAMETHASONE SODIUM PHOSPHATE. [Concomitant]
     Active Substance: DEXAMETHASONE SODIUM PHOSPHATE
     Dates: start: 20170123
  17. PANTOPRAZOLE SODIUM. [Concomitant]
     Active Substance: PANTOPRAZOLE SODIUM
     Dates: start: 20190222, end: 20190228
  18. ATROVENT [Concomitant]
     Active Substance: IPRATROPIUM BROMIDE
     Dates: start: 20190223, end: 20190228

REACTIONS (2)
  - Gastric cancer [Recovered/Resolved]
  - Adenomyosis [Recovered/Resolved]

NARRATIVE: CASE EVENT DATE: 20190221
